FAERS Safety Report 10765866 (Version 2)
Quarter: 2015Q1

REPORT INFORMATION
  Report Type: Spontaneous
  Country: CN (occurrence: CN)
  Receive Date: 20150205
  Receipt Date: 20150217
  Transmission Date: 20150721
  Serious: Yes (Death, Life-Threatening)
  Sender: FDA-Public Use
  Company Number: CN-SA-2015SA012960

PATIENT
  Age: 64 Year
  Sex: Male

DRUGS (2)
  1. FLUDARABINE PHOSPHATE. [Suspect]
     Active Substance: FLUDARABINE PHOSPHATE
     Indication: WALDENSTROM^S MACROGLOBULINAEMIA
     Route: 065
  2. FLUDARABINE PHOSPHATE. [Suspect]
     Active Substance: FLUDARABINE PHOSPHATE
     Indication: WALDENSTROM^S MACROGLOBULINAEMIA
     Route: 065

REACTIONS (7)
  - Epistaxis [Not Recovered/Not Resolved]
  - Mucosal haemorrhage [Not Recovered/Not Resolved]
  - Immune thrombocytopenic purpura [Not Recovered/Not Resolved]
  - Off label use [Unknown]
  - Pneumonia [Fatal]
  - Oral mucosa haematoma [Not Recovered/Not Resolved]
  - Petechiae [Not Recovered/Not Resolved]
